FAERS Safety Report 10143308 (Version 1)
Quarter: 2014Q2

REPORT INFORMATION
  Report Type: Spontaneous
  Country: US (occurrence: None)
  Receive Date: 20140429
  Receipt Date: 20140429
  Transmission Date: 20141212
  Serious: Yes (Hospitalization)
  Sender: FDA-Public Use
  Company Number: None

PATIENT
  Age: 58 Year
  Sex: Male
  Weight: 70.5 kg

DRUGS (2)
  1. VANCOMYCIN [Suspect]
     Indication: INFECTION
     Route: 042
  2. RIFAMPIN [Suspect]
     Indication: INFECTION
     Route: 048
     Dates: start: 20140325

REACTIONS (2)
  - Renal failure acute [None]
  - Rash [None]
